FAERS Safety Report 7872956-6 (Version None)
Quarter: 2011Q4

REPORT INFORMATION
  Report Type: 
  Country: None (occurrence: None)
  Receive Date: 20111030
  Receipt Date: 20110420
  Transmission Date: 20120403
  Serious: No
  Sender: FDA-Public Use
  Company Number: US-AMGEN-USASP2011020949

PATIENT
  Sex: Female

DRUGS (1)
  1. ENBREL [Suspect]
     Indication: PSORIASIS
     Dosage: 50 MG, 2 TIMES/WK
     Dates: start: 20080601, end: 20100401

REACTIONS (9)
  - WHITE BLOOD CELL COUNT INCREASED [None]
  - MOBILITY DECREASED [None]
  - SKIN DISCOLOURATION [None]
  - PAIN [None]
  - THERAPEUTIC RESPONSE DECREASED [None]
  - SKIN DISORDER [None]
  - PSORIASIS [None]
  - ROTATOR CUFF SYNDROME [None]
  - PERIARTHRITIS [None]
